FAERS Safety Report 8069981-1 (Version None)
Quarter: 2012Q1

REPORT INFORMATION
  Report Type: 
  Country: None (occurrence: None)
  Receive Date: 20120119
  Receipt Date: 20120117
  Transmission Date: 20120608
  Serious: Yes (Hospitalization, Other)
  Sender: FDA-Public Use
  Company Number: ADR-2011-11453

PATIENT
  Sex: Female

DRUGS (1)
  1. LIORESAL [Suspect]
     Indication: MUSCLE SPASTICITY
     Dosage: 523.4 MCG, DAILY, INTRATH
     Route: 037

REACTIONS (6)
  - IMPLANT SITE EFFUSION [None]
  - IMPLANT SITE INFECTION [None]
  - HEADACHE [None]
  - UNEVALUABLE EVENT [None]
  - INJURY [None]
  - MALAISE [None]
